FAERS Safety Report 5878173-3 (Version None)
Quarter: 2008Q3

REPORT INFORMATION
  Report Type: 
  Country: None (occurrence: None)
  Receive Date: 20080910
  Receipt Date: 20080910
  Transmission Date: 20090109
  Serious: Yes (Death)
  Sender: FDA-Public Use
  Company Number: None

PATIENT
  Age: 63 Year
  Sex: Male
  Weight: 106.5953 kg

DRUGS (1)
  1. MORPHINE SULFATE [Suspect]
     Indication: PAIN
     Dosage: 1 60 MG PER DAY FOR 3 DAYS
     Dates: start: 20080202, end: 20080204

REACTIONS (2)
  - MULTI-ORGAN FAILURE [None]
  - PHARMACEUTICAL PRODUCT COMPLAINT [None]
